FAERS Safety Report 8266621 (Version 2)
Quarter: 2012Q4

REPORT INFORMATION
  Report Type: 
  Country: US (occurrence: US)
  Receive Date: 20111129
  Receipt Date: 20121129
  Transmission Date: 20130627
  Serious: No
  Sender: FDA-Public Use
  Company Number: US-GLAXOSMITHKLINE-A0932047A

PATIENT
  Age: 33 Year
  Sex: Male

DRUGS (2)
  1. WELLBUTRIN SR [Suspect]
     Indication: DEPRESSION
     Dosage: 200MG Twice per day
     Route: 048
     Dates: start: 2008
  2. KLONOPIN [Concomitant]

REACTIONS (4)
  - Product odour abnormal [Unknown]
  - Nausea [Unknown]
  - Vomiting [Unknown]
  - Product quality issue [Unknown]
